FAERS Safety Report 22287416 (Version 1)
Quarter: 2023Q2

REPORT INFORMATION
  Report Type: Spontaneous
  Country: CA (occurrence: CA)
  Receive Date: 20230505
  Receipt Date: 20230505
  Transmission Date: 20230722
  Serious: Yes (Hospitalization)
  Sender: FDA-Public Use
  Company Number: CA-CELLTRION INC.-2023CA006000

PATIENT

DRUGS (7)
  1. INFLECTRA [Suspect]
     Active Substance: INFLIXIMAB-DYYB
     Indication: Colitis ulcerative
     Dosage: 5 MG/KG, INDUCTION WEEKS 0, 2, 6 AND Q8 WEEKS MAINTENANCE (HOSPITAL START)
     Route: 042
     Dates: start: 20230310
  2. INFLECTRA [Suspect]
     Active Substance: INFLIXIMAB-DYYB
     Dosage: 5 MG/KG, W0, W2, W6 AND Q8 WEEKS
     Route: 042
     Dates: start: 20230323
  3. INFLECTRA [Suspect]
     Active Substance: INFLIXIMAB-DYYB
     Dosage: 5MG/KG (300MG) AFTER 4 WEEKS (WEEK 6 INDUCTION)
     Route: 042
     Dates: start: 20230428
  4. PREDNISONE [Concomitant]
     Active Substance: PREDNISONE
     Dosage: UNK, STARTED IN HOSPITAL
  5. PREDNISONE [Concomitant]
     Active Substance: PREDNISONE
     Dosage: UNK
  6. PREDNISONE [Concomitant]
     Active Substance: PREDNISONE
     Dosage: UNK, STARTED IN HOSPITAL
  7. PREDNISONE [Concomitant]
     Active Substance: PREDNISONE
     Dosage: UNK

REACTIONS (9)
  - Hypotension [Unknown]
  - Accident [Unknown]
  - Malaise [Not Recovered/Not Resolved]
  - Dehydration [Unknown]
  - Dizziness [Unknown]
  - Asthenia [Unknown]
  - Heart rate decreased [Unknown]
  - Off label use [Unknown]
  - Gait disturbance [Unknown]

NARRATIVE: CASE EVENT DATE: 20230301
